FAERS Safety Report 18940569 (Version 1)
Quarter: 2021Q1

REPORT INFORMATION
  Report Type: Spontaneous
  Country: CA (occurrence: CA)
  Receive Date: 20210225
  Receipt Date: 20210225
  Transmission Date: 20210420
  Serious: Yes (Other)
  Sender: FDA-Public Use
  Company Number: CA-ROCHE-2769333

PATIENT
  Age: 52 Year
  Sex: Female
  Weight: 98 kg

DRUGS (31)
  1. LETROZOLE. [Suspect]
     Active Substance: LETROZOLE
     Indication: METASTASES TO LIVER
  2. PACLITAXEL. [Suspect]
     Active Substance: PACLITAXEL
     Indication: BREAST CANCER METASTATIC
     Route: 042
  3. TAMOXIFEN [Suspect]
     Active Substance: TAMOXIFEN
     Indication: BREAST CANCER METASTATIC
     Route: 048
  4. TAXOL [Suspect]
     Active Substance: PACLITAXEL
     Indication: BREAST CANCER METASTATIC
     Route: 048
  5. ACETAMINOPHEN. [Concomitant]
     Active Substance: ACETAMINOPHEN
     Dosage: 1.0 DOSAGE FORMS
     Route: 048
  6. ACETAMINOPHEN;CODEINE [Concomitant]
     Active Substance: ACETAMINOPHEN\CODEINE PHOSPHATE
     Dosage: 1.0 DOSAGE FORMS
     Route: 048
  7. EXEMESTANE. [Suspect]
     Active Substance: EXEMESTANE
     Indication: BREAST CANCER METASTATIC
     Route: 048
  8. PACLITAXEL. [Suspect]
     Active Substance: PACLITAXEL
     Indication: METASTASES TO LIVER
  9. TAMOXIFEN [Suspect]
     Active Substance: TAMOXIFEN
     Indication: METASTASES TO BONE
  10. TAXOL [Suspect]
     Active Substance: PACLITAXEL
     Indication: METASTASES TO LIVER
  11. XELODA [Suspect]
     Active Substance: CAPECITABINE
     Indication: BREAST CANCER METASTATIC
     Route: 048
  12. LETROZOLE. [Suspect]
     Active Substance: LETROZOLE
     Indication: BREAST CANCER METASTATIC
     Route: 048
  13. PROCYTOX [Suspect]
     Active Substance: CYCLOPHOSPHAMIDE
     Indication: BREAST CANCER STAGE II
     Route: 065
  14. HYDROCHLOROTHIAZIDE. [Concomitant]
     Active Substance: HYDROCHLOROTHIAZIDE
     Dosage: 1.0 DOSAGE FORMS
     Route: 048
  15. XELODA [Suspect]
     Active Substance: CAPECITABINE
     Indication: METASTASES TO LIVER
  16. CARBOPLATIN. [Suspect]
     Active Substance: CARBOPLATIN
     Indication: BREAST CANCER METASTATIC
     Route: 042
  17. CANNABIDIOL [Concomitant]
     Active Substance: CANNABIDIOL
     Dosage: 2.0 DOSAGE FORMS
     Route: 048
  18. HYDROMORPHONE [Concomitant]
     Active Substance: HYDROMORPHONE
     Dosage: 3.0 DOSAGE FORMS
     Route: 048
  19. CARBOPLATIN. [Suspect]
     Active Substance: CARBOPLATIN
     Indication: METASTASES TO LIVER
  20. FLUOROURACIL. [Suspect]
     Active Substance: FLUOROURACIL
     Indication: BREAST CANCER METASTATIC
     Route: 065
  21. TAXOTERE [Suspect]
     Active Substance: DOCETAXEL
     Indication: BREAST CANCER METASTATIC
     Route: 042
  22. OLMESARTAN MEDOXOMIL. [Concomitant]
     Active Substance: OLMESARTAN MEDOXOMIL
     Route: 048
  23. EXEMESTANE. [Suspect]
     Active Substance: EXEMESTANE
     Indication: METASTASES TO LIVER
  24. FLUOROURACIL. [Suspect]
     Active Substance: FLUOROURACIL
     Indication: METASTASES TO LIVER
  25. PACLITAXEL. [Suspect]
     Active Substance: PACLITAXEL
     Indication: METASTASES TO BONE
  26. EPIRUBICIN [Suspect]
     Active Substance: EPIRUBICIN
     Indication: BREAST CANCER STAGE II
     Route: 042
  27. TAXOTERE [Suspect]
     Active Substance: DOCETAXEL
     Indication: METASTASES TO LIVER
  28. AFINITOR [Suspect]
     Active Substance: EVEROLIMUS
     Indication: BREAST CANCER METASTATIC
     Route: 048
  29. TAMOXIFEN [Suspect]
     Active Substance: TAMOXIFEN
     Indication: METASTASES TO LIVER
     Route: 048
  30. AFINITOR [Suspect]
     Active Substance: EVEROLIMUS
     Indication: METASTASES TO LIVER
  31. MAGNESIUM [Concomitant]
     Active Substance: MAGNESIUM
     Dosage: 1.0 DOSAGE FORMS
     Route: 048

REACTIONS (17)
  - Heart rate irregular [Unknown]
  - Device related thrombosis [Unknown]
  - Diarrhoea [Unknown]
  - Chest pain [Unknown]
  - Drug ineffective [Unknown]
  - Nail disorder [Unknown]
  - Rash [Unknown]
  - Metastases to bone [Unknown]
  - Metastases to liver [Unknown]
  - Asthma [Unknown]
  - Drug hypersensitivity [Unknown]
  - Nausea [Unknown]
  - Neuropathy peripheral [Unknown]
  - Skin exfoliation [Unknown]
  - Breast cancer metastatic [Unknown]
  - Paraesthesia [Unknown]
  - Vomiting [Unknown]
